FAERS Safety Report 19231915 (Version 3)
Quarter: 2021Q3

REPORT INFORMATION
  Report Type: Spontaneous
  Country: IT (occurrence: IT)
  Receive Date: 20210507
  Receipt Date: 20210820
  Transmission Date: 20211014
  Serious: Yes (Hospitalization, Other)
  Sender: FDA-Public Use
  Company Number: IT-ROCHE-2822934

PATIENT
  Age: 73 Year
  Sex: Female
  Weight: 53 kg

DRUGS (2)
  1. NAB?PACLITAXEL [Concomitant]
     Active Substance: PACLITAXEL
     Dosage: 100 MG/MQ IV, ON DAYS 1, 8, AND 15 EVERY 28 DAYS
     Route: 042
  2. TECENTRIQ [Suspect]
     Active Substance: ATEZOLIZUMAB
     Indication: TRIPLE NEGATIVE BREAST CANCER
     Dosage: 840 MG IV ON DAYS 1 AND 15 EVERY 28 DAYS
     Route: 042
     Dates: start: 20210412

REACTIONS (4)
  - Mesenteric panniculitis [Unknown]
  - Pyrexia [Unknown]
  - Abdominal pain [Recovered/Resolved]
  - Asthenia [Recovered/Resolved]

NARRATIVE: CASE EVENT DATE: 20210424
